FAERS Safety Report 5507289-6 (Version None)
Quarter: 2007Q4

REPORT INFORMATION
  Report Type: 
  Country: None (occurrence: None)
  Receive Date: 20071025
  Receipt Date: 20071011
  Transmission Date: 20080405
  Serious: Yes (Other)
  Sender: FDA-Public Use
  Company Number: THYM-11569

PATIENT
  Sex: Female

DRUGS (1)
  1. THYMOGLOBULIN [Suspect]
     Indication: APLASTIC ANAEMIA
     Dosage: 3.75 MG/KG DAILY IV
     Route: 042

REACTIONS (3)
  - BLOOD PRESSURE ABNORMAL [None]
  - HYPERSENSITIVITY [None]
  - PYREXIA [None]
